FAERS Safety Report 24386524 (Version 1)
Quarter: 2024Q4

REPORT INFORMATION
  Report Type: Spontaneous
  Country: TH (occurrence: TH)
  Receive Date: 20241002
  Receipt Date: 20241002
  Transmission Date: 20250114
  Serious: Yes (Other)
  Sender: ROCHE
  Company Number: TH-ROCHE-10000093154

PATIENT
  Sex: Female

DRUGS (1)
  1. TECENTRIQ [Suspect]
     Active Substance: ATEZOLIZUMAB
     Indication: Small cell lung cancer extensive stage
     Route: 042

REACTIONS (3)
  - Metastases to peritoneum [Unknown]
  - Pancreatic carcinoma metastatic [Unknown]
  - Disease progression [Unknown]
